FAERS Safety Report 7851010-3 (Version None)
Quarter: 2011Q4

REPORT INFORMATION
  Report Type: 
  Country: None (occurrence: None)
  Receive Date: 20111026
  Receipt Date: 20111021
  Transmission Date: 20120403
  Serious: Yes (Hospitalization)
  Sender: FDA-Public Use
  Company Number: FR-SANOFI-AVENTIS-2011SA069521

PATIENT
  Age: 48 Year
  Sex: Male
  Weight: 84 kg

DRUGS (4)
  1. DOXORUBICIN HYDROCHLORIDE [Concomitant]
  2. VELCADE [Suspect]
     Route: 042
     Dates: start: 20101104, end: 20110516
  3. DEXAMETHASONE [Concomitant]
  4. RIFAMPIN AND ISONIAZID [Suspect]
     Indication: TUBERCULOSIS
     Dosage: DOSE:2 UNIT(S)
     Route: 048
     Dates: start: 20101203, end: 20110223

REACTIONS (2)
  - BLOOD IMMUNOGLOBULIN G INCREASED [None]
  - DRUG INTERACTION [None]
